FAERS Safety Report 17652096 (Version 1)
Quarter: 2020Q2

REPORT INFORMATION
  Report Type: Spontaneous
  Country: DE (occurrence: DE)
  Receive Date: 20200409
  Receipt Date: 20200409
  Transmission Date: 20200713
  Serious: Yes (Hospitalization, Other)
  Sender: FDA-Public Use
  Company Number: DE-SA-2020SA091150

PATIENT
  Age: 69 Year
  Sex: Female

DRUGS (13)
  1. DOCITON [Concomitant]
     Active Substance: PROPRANOLOL HYDROCHLORIDE
     Dosage: 40 MG, BID (HALF DOSAGE FORM)
  2. LORAZEPAM. [Concomitant]
     Active Substance: LORAZEPAM
     Dosage: 0.5 MG, QD
  3. IBUPROFEN. [Suspect]
     Active Substance: IBUPROFEN
     Dosage: 400 MG, BID (1-0-1-0)
     Route: 065
  4. ENOXAPARIN SODIUM. [Suspect]
     Active Substance: ENOXAPARIN SODIUM
     Dosage: 40 MG, QD (0-0-1-0)
     Route: 065
  5. VITAMIN B KOMPLEX [CALCIUM PANTOTHENATE;NICOTINAMIDE;PYRIDOXINE HYDROC [Concomitant]
     Dosage: UNK UNK, QD
  6. FUROSEMID [FUROSEMIDE] [Concomitant]
     Active Substance: FUROSEMIDE
     Dosage: 40 MG, QD
  7. NALOXONE;TILIDINE [Concomitant]
     Active Substance: NALOXONE HYDROCHLORIDE\TILIDINE HYDROCHLORIDE
     Dosage: 8|100 MG, TWICE A DAY (1-0-1-0)
  8. SPIRONOLACTON [Concomitant]
     Active Substance: SPIRONOLACTONE
     Dosage: 50 MG, BID
  9. LEVOTHYROXINUM NATRICUM [Concomitant]
     Dosage: 50 UG, QD
  10. PANTOPRAZOL [PANTOPRAZOLE] [Concomitant]
     Active Substance: PANTOPRAZOLE
     Dosage: 40 MG, QD
  11. FOLIC ACID. [Concomitant]
     Active Substance: FOLIC ACID
     Dosage: 5 MG, QD
  12. REKAWAN [Concomitant]
     Active Substance: POTASSIUM CHLORIDE
     Dosage: 600 MG, TID
  13. NEUROTRAT S [Concomitant]
     Active Substance: PYRIDOXINE\THIAMINE
     Dosage: 100|100 MG, DAILY (1-0-0-0)

REACTIONS (4)
  - Haematemesis [Unknown]
  - Product prescribing error [Unknown]
  - Pallor [Unknown]
  - Anaemia [Unknown]
